FAERS Safety Report 8181307-1 (Version None)
Quarter: 2012Q1

REPORT INFORMATION
  Report Type: 
  Country: None (occurrence: None)
  Receive Date: 20120302
  Receipt Date: 20120222
  Transmission Date: 20120608
  Serious: Yes (Other)
  Sender: FDA-Public Use
  Company Number: US-ASTRAZENECA-2012SE12094

PATIENT
  Age: 42 Year
  Sex: Male

DRUGS (1)
  1. SEROQUEL [Suspect]
     Route: 048

REACTIONS (12)
  - MIGRAINE [None]
  - DRUG WITHDRAWAL SYNDROME [None]
  - VOMITING [None]
  - DRUG DOSE OMISSION [None]
  - LOSS OF CONSCIOUSNESS [None]
  - DELIRIUM [None]
  - INSOMNIA [None]
  - FEELING ABNORMAL [None]
  - MEMORY IMPAIRMENT [None]
  - HEADACHE [None]
  - PETIT MAL EPILEPSY [None]
  - PROCEDURAL PAIN [None]
